FAERS Safety Report 7440424-1 (Version None)
Quarter: 2011Q2

REPORT INFORMATION
  Report Type: 
  Country: None (occurrence: None)
  Receive Date: 20110427
  Receipt Date: 20110426
  Transmission Date: 20111010
  Serious: No
  Sender: FDA-Public Use
  Company Number: GB-BRISTOL-MYERS SQUIBB COMPANY-15659204

PATIENT
  Age: 71 Year
  Sex: Male

DRUGS (6)
  1. GLIMEPIRIDE [Suspect]
     Indication: TYPE 2 DIABETES MELLITUS
  2. BLINDED: PLACEBO [Suspect]
     Indication: TYPE 2 DIABETES MELLITUS
     Dosage: STOPPED ON 04-APR-2011
     Dates: start: 20100910
  3. METFORMIN HCL [Suspect]
     Indication: TYPE 2 DIABETES MELLITUS
  4. ASPIRIN [Concomitant]
     Dates: start: 20100910
  5. PIOGLITAZONE HCL [Suspect]
     Indication: TYPE 2 DIABETES MELLITUS
  6. BLINDED: SAXAGLIPTIN [Suspect]
     Indication: TYPE 2 DIABETES MELLITUS
     Dosage: STOPPED ON 04-APR-2011
     Dates: start: 20100910

REACTIONS (1)
  - HYPOGLYCAEMIA [None]
